FAERS Safety Report 5103972-5 (Version None)
Quarter: 2006Q3

REPORT INFORMATION
  Report Type: 
  Country: None (occurrence: None)
  Receive Date: 20060908
  Receipt Date: 20060825
  Transmission Date: 20061208
  Serious: Yes (Other)
  Sender: FDA-Public Use
  Company Number: 060825-0000783

PATIENT
  Age: 88 Year
  Sex: Female

DRUGS (1)
  1. COGENTIN [Suspect]
     Indication: DRUG USE FOR UNKNOWN INDICATION
     Dates: start: 20060601, end: 20060601

REACTIONS (2)
  - DEMENTIA [None]
  - WRONG DRUG ADMINISTERED [None]
